FAERS Safety Report 6045675-9 (Version None)
Quarter: 2009Q1

REPORT INFORMATION
  Report Type: 
  Country: None (occurrence: None)
  Receive Date: 20090121
  Receipt Date: 20090109
  Transmission Date: 20090719
  Serious: Yes (Other)
  Sender: FDA-Public Use
  Company Number: IE-SANOFI-SYNTHELABO-A01200816283

PATIENT
  Sex: Male

DRUGS (2)
  1. CASODEX [Concomitant]
     Dosage: UNK
  2. ELIGARD [Suspect]
     Indication: PROSTATE CANCER METASTATIC
     Dosage: 22.5 MG
     Route: 058

REACTIONS (3)
  - CEREBROVASCULAR ACCIDENT [None]
  - DYSARTHRIA [None]
  - HEMIPARESIS [None]
